FAERS Safety Report 8792313 (Version 3)
Quarter: 2013Q2

REPORT INFORMATION
  Report Type: Spontaneous
  Country: US (occurrence: US)
  Receive Date: 20120917
  Receipt Date: 20130614
  Transmission Date: 20140414
  Serious: Yes (Death)
  Sender: FDA-Public Use
  Company Number: US-ROCHE-1125707

PATIENT
  Sex: Male

DRUGS (3)
  1. AVASTIN [Suspect]
     Indication: HEAD AND NECK CANCER
     Route: 065
  2. AVASTIN [Suspect]
     Indication: LARYNGEAL CANCER
  3. AVASTIN [Suspect]
     Indication: NEOPLASM MALIGNANT

REACTIONS (1)
  - Death [Fatal]
